FAERS Safety Report 4362443-4 (Version None)
Quarter: 2004Q2

REPORT INFORMATION
  Report Type: 
  Country: None (occurrence: None)
  Receive Date: 20040521
  Receipt Date: 20040514
  Transmission Date: 20050107
  Serious: Yes (Other)
  Sender: FDA-Public Use
  Company Number: US-GLAXOSMITHKLINE-A0511235A

PATIENT
  Age: 21 Year
  Sex: Female

DRUGS (4)
  1. COMBIVIR [Suspect]
     Indication: HIV INFECTION
     Dosage: 1TABS PER DAY
     Route: 048
     Dates: start: 20030801, end: 20031014
  2. COMBIVIR [Suspect]
     Route: 048
     Dates: start: 20031021
  3. SUSTIVA [Concomitant]
     Indication: HIV INFECTION
     Dosage: 600MG CUMULATIVE DOSE
     Dates: start: 20030801
  4. NEVIRAPINE [Concomitant]
     Indication: HIV INFECTION
     Dosage: 400MG CUMULATIVE DOSE
     Route: 048
     Dates: start: 20031021, end: 20031104

REACTIONS (3)
  - DRUG EXPOSURE DURING PREGNANCY [None]
  - PREMATURE BABY [None]
  - STILLBIRTH [None]
